FAERS Safety Report 9354699 (Version 1)
Quarter: 2013Q2

REPORT INFORMATION
  Report Type: Spontaneous
  Country: FR (occurrence: FR)
  Receive Date: 20130619
  Receipt Date: 20130619
  Transmission Date: 20140414
  Serious: Yes (Death, Life-Threatening, Hospitalization)
  Sender: FDA-Public Use
  Company Number: FR-ABBOTT-13X-056-1104712-00

PATIENT
  Age: 68 Year
  Sex: Male

DRUGS (5)
  1. LIPANTHYL [Suspect]
     Indication: HYPERCHOLESTEROLAEMIA
     Route: 048
     Dates: start: 200902, end: 20130425
  2. ICAZ [Suspect]
     Indication: HYPERTENSION
     Route: 048
     Dates: start: 200902, end: 20130425
  3. BIPRETERAX [Suspect]
     Indication: HYPERTENSION
     Dosage: FORM STRENGTH: 5 MG/1.25 MG
     Route: 048
     Dates: start: 200902, end: 20130425
  4. NEVIBOLOL DCI [Suspect]
     Indication: HYPERTENSION
     Route: 048
     Dates: start: 200902, end: 20130425
  5. PARACETAMOL [Concomitant]
     Indication: PRODUCT USED FOR UNKNOWN INDICATION
     Route: 048
     Dates: start: 200902, end: 20130425

REACTIONS (40)
  - Lipase abnormal [Unknown]
  - Leukocytosis [Unknown]
  - Coagulopathy [Unknown]
  - Hyperlactacidaemia [Unknown]
  - Cholestasis [Unknown]
  - Hepatocellular injury [Unknown]
  - Cardio-respiratory arrest [Unknown]
  - Treatment failure [Unknown]
  - Soft tissue disorder [Unknown]
  - Hepatomegaly [Unknown]
  - Oedema [Unknown]
  - Pleural effusion [Unknown]
  - Pericardial effusion [Unknown]
  - Pancreatic necrosis [Unknown]
  - Ascites [Unknown]
  - Cholelithiasis [Unknown]
  - Haematoma [Unknown]
  - Arthropathy [Unknown]
  - Pancreatitis acute [Fatal]
  - Gastroenteritis [Unknown]
  - Food poisoning [Unknown]
  - Tachypnoea [Unknown]
  - Hypothermia [Unknown]
  - Depressed level of consciousness [Unknown]
  - Cyanosis [Unknown]
  - Shock [Unknown]
  - Flatulence [Unknown]
  - Blood pressure abnormal [Unknown]
  - Bradyarrhythmia [Unknown]
  - Atrial fibrillation [Unknown]
  - Electrocardiogram ST segment depression [Unknown]
  - Dehydration [Unknown]
  - Abdominal rigidity [Unknown]
  - Back pain [Unknown]
  - Renal failure acute [Unknown]
  - Hypoproteinaemia [Unknown]
  - Unevaluable event [Unknown]
  - Hyperkalaemia [Unknown]
  - Hyponatraemia [Unknown]
  - Metabolic acidosis [Unknown]
